FAERS Safety Report 9291517 (Version 3)
Quarter: 2014Q4

REPORT INFORMATION
  Report Type: Spontaneous
  Country: US (occurrence: US)
  Receive Date: 20130515
  Receipt Date: 20141023
  Transmission Date: 20150529
  Serious: Yes (Hospitalization)
  Sender: FDA-Public Use
  Company Number: US-009507513-1305USA009296

PATIENT
  Sex: Male
  Weight: 111.11 kg

DRUGS (1)
  1. PROPECIA [Suspect]
     Active Substance: FINASTERIDE
     Indication: ANDROGENETIC ALOPECIA
     Dosage: 1 MG, QD
     Route: 048
     Dates: start: 20110125, end: 20111030

REACTIONS (7)
  - Diabetes mellitus inadequate control [Unknown]
  - Hair transplant [Unknown]
  - Hypertension [Unknown]
  - Testicular failure [Unknown]
  - Erectile dysfunction [Recovering/Resolving]
  - Sexual dysfunction [Not Recovered/Not Resolved]
  - Type 2 diabetes mellitus [Unknown]

NARRATIVE: CASE EVENT DATE: 2011
